FAERS Safety Report 5368779-2 (Version None)
Quarter: 2007Q2

REPORT INFORMATION
  Report Type: 
  Country: None (occurrence: None)
  Receive Date: 20070620
  Receipt Date: 20070612
  Transmission Date: 20071010
  Serious: Yes (Hospitalization, Disabling, Other)
  Sender: FDA-Public Use
  Company Number: 163-21880-06120918

PATIENT
  Age: 67 Year
  Sex: Female

DRUGS (1)
  1. REVLIMID [Suspect]
     Indication: MULTIPLE MYELOMA
     Dosage: SEE IMAGE
     Route: 048
     Dates: start: 20060921, end: 20061219

REACTIONS (5)
  - ABASIA [None]
  - ASTHENIA [None]
  - CARDIAC DISORDER [None]
  - PAIN IN EXTREMITY [None]
  - PNEUMONIA [None]
